FAERS Safety Report 5733552-X (Version None)
Quarter: 2008Q2

REPORT INFORMATION
  Report Type: 
  Country: None (occurrence: None)
  Receive Date: 20080509
  Receipt Date: 20080501
  Transmission Date: 20081010
  Serious: Yes (Hospitalization)
  Sender: FDA-Public Use
  Company Number: US-JNJFOC-20080500513

PATIENT
  Age: 77 Year
  Sex: Female
  Weight: 82.1 kg

DRUGS (8)
  1. TYLENOL (CAPLET) [Suspect]
     Dosage: HALF A CAPLET TWICE
     Route: 048
  2. TYLENOL (CAPLET) [Suspect]
     Indication: ARTHRALGIA
     Route: 048
  3. CAPTOPRIL [Concomitant]
     Indication: HYPERTENSION
  4. LOPRESSOR [Concomitant]
     Indication: HYPERTENSION
  5. NORVASC [Concomitant]
     Indication: HYPERTENSION
  6. CAFFEINE CITRATE [Concomitant]
  7. UNSPECIFIED ANTIBIOTICS [Concomitant]
  8. UNSPECIFIED MEDICATIONS [Concomitant]

REACTIONS (2)
  - CHOLECYSTITIS INFECTIVE [None]
  - WRONG TECHNIQUE IN DRUG USAGE PROCESS [None]
